FAERS Safety Report 10181316 (Version 2)
Quarter: 2014Q2

REPORT INFORMATION
  Report Type: Spontaneous
  Country: US (occurrence: US)
  Receive Date: 20140519
  Receipt Date: 20140519
  Transmission Date: 20141212
  Serious: No
  Sender: FDA-Public Use
  Company Number: US-AMGEN INC.-USASP2014017282

PATIENT
  Age: 68 Year
  Sex: Female

DRUGS (5)
  1. PROLIA [Suspect]
     Indication: OSTEOPOROSIS POSTMENOPAUSAL
     Dosage: 60 MG, Q6MO
     Route: 058
  2. SINGULAIR [Concomitant]
  3. WELLBUTRIN [Concomitant]
  4. CALCIUM + VITAMIN D                /01483701/ [Concomitant]
  5. VITAMIN D                          /00107901/ [Concomitant]

REACTIONS (9)
  - Device breakage [Unknown]
  - Tooth fracture [Unknown]
  - Tooth infection [Unknown]
  - Gingival recession [Unknown]
  - Sensitivity of teeth [Unknown]
  - Gingival inflammation [Unknown]
  - Toothache [Unknown]
  - Pain in jaw [Unknown]
  - Gingival bleeding [Unknown]
